FAERS Safety Report 9429804 (Version 1)
Quarter: 2013Q3

REPORT INFORMATION
  Report Type: Spontaneous
  Country: US (occurrence: US)
  Receive Date: 20130730
  Receipt Date: 20130730
  Transmission Date: 20140515
  Serious: No
  Sender: FDA-Public Use
  Company Number: US-ABBOTT-13P-163-1069118-00

PATIENT
  Age: 44 Year
  Sex: Female
  Weight: 91.71 kg

DRUGS (6)
  1. NIASPAN (COATED) [Suspect]
     Indication: PRODUCT USED FOR UNKNOWN INDICATION
     Dates: start: 201301, end: 201301
  2. NIASPAN (COATED) [Suspect]
     Dates: start: 20130225, end: 20130225
  3. METFORMIN [Concomitant]
     Indication: DIABETES MELLITUS
  4. JANUVIA [Concomitant]
     Indication: DIABETES MELLITUS
  5. TRILIPIX [Concomitant]
     Indication: BLOOD TRIGLYCERIDES INCREASED
  6. CRESTOR [Concomitant]
     Indication: HYPERCHOLESTEROLAEMIA

REACTIONS (6)
  - Generalised oedema [Recovered/Resolved]
  - Formication [Recovered/Resolved]
  - Vulvovaginal swelling [Recovered/Resolved]
  - Skin burning sensation [Recovered/Resolved]
  - Pruritus [Recovered/Resolved]
  - Palpitations [Recovered/Resolved]
